FAERS Safety Report 19194269 (Version 1)
Quarter: 2021Q2

REPORT INFORMATION
  Report Type: Report from Study
  Country: US (occurrence: US)
  Receive Date: 20210429
  Receipt Date: 20210429
  Transmission Date: 20210717
  Serious: Yes (Other)
  Sender: FDA-Public Use
  Company Number: US-EMD SERONO-E2B_90030212

PATIENT
  Sex: Male

DRUGS (2)
  1. REBIF [Suspect]
     Active Substance: INTERFERON BETA-1A
     Indication: MULTIPLE SCLEROSIS
     Dosage: PREVIOUS USED REBIDOSE
     Route: 058
     Dates: start: 20130419, end: 201802
  2. REBIF [Suspect]
     Active Substance: INTERFERON BETA-1A
     Route: 058
     Dates: start: 20181008

REACTIONS (6)
  - Fatigue [Unknown]
  - Bell^s palsy [Unknown]
  - Benign neoplasm of thyroid gland [Unknown]
  - Hyposomnia [Unknown]
  - Thyroid function test abnormal [Unknown]
  - Stress [Unknown]
